FAERS Safety Report 17043551 (Version 2)
Quarter: 2019Q4

REPORT INFORMATION
  Report Type: Spontaneous
  Country: IT (occurrence: IT)
  Receive Date: 20191118
  Receipt Date: 20191122
  Transmission Date: 20200122
  Serious: Yes (Hospitalization)
  Sender: FDA-Public Use
  Company Number: IT-MYLANLABS-2019M1110016

PATIENT
  Age: 47 Year
  Sex: Female

DRUGS (6)
  1. SOLDESAM [Concomitant]
     Active Substance: DEXAMETHASONE
     Dosage: 8 MILLIGRAM
     Route: 042
     Dates: start: 20190312, end: 20190312
  2. HERCEPTIN [Concomitant]
     Active Substance: TRASTUZUMAB
     Dosage: 276 MILLIGRAM
     Route: 042
     Dates: start: 20190312, end: 20190312
  3. RANITIDINE. [Concomitant]
     Active Substance: RANITIDINE
     Dosage: 1 DOSAGE FORM (50 MG/5ML)
     Route: 042
     Dates: start: 20190312, end: 20190312
  4. EUTIROX [Concomitant]
     Active Substance: LEVOTHYROXINE SODIUM
     Dosage: 125 MICROGRAM
     Route: 048
  5. PACLITAXEL MYLAN [Suspect]
     Active Substance: PACLITAXEL
     Indication: CHEMOTHERAPY
     Dosage: 144 MILLIGRAM, TOTAL
     Route: 042
     Dates: start: 20190312, end: 20190312
  6. TRIMETON [Concomitant]
     Active Substance: CHLORPHENIRAMINE MALEATE
     Dosage: 10 MILLIGRAM
     Route: 042
     Dates: start: 20190312, end: 20190312

REACTIONS (4)
  - Dyspnoea [Recovered/Resolved]
  - Lip oedema [Recovered/Resolved]
  - Flushing [Recovered/Resolved]
  - Rash [Recovered/Resolved]

NARRATIVE: CASE EVENT DATE: 20190312
